FAERS Safety Report 5773184-0 (Version None)
Quarter: 2008Q2

REPORT INFORMATION
  Report Type: 
  Country: None (occurrence: None)
  Receive Date: 20080613
  Receipt Date: 20080613
  Transmission Date: 20081010
  Serious: No
  Sender: FDA-Public Use
  Company Number: None

PATIENT
  Sex: Female
  Weight: 69 kg

DRUGS (1)
  1. CEFEPIME [Suspect]
     Dosage: 1 GM Q12H IV BOLUS
     Route: 040
     Dates: start: 20080521, end: 20080610

REACTIONS (5)
  - HEADACHE [None]
  - HYPERHIDROSIS [None]
  - PHARMACEUTICAL PRODUCT COMPLAINT [None]
  - PYREXIA [None]
  - RASH [None]
